FAERS Safety Report 9728225 (Version 1)
Quarter: 2013Q4

REPORT INFORMATION
  Report Type: Spontaneous
  Country: US (occurrence: None)
  Receive Date: 20131202
  Receipt Date: 20131202
  Transmission Date: 20140711
  Serious: No
  Sender: FDA-Public Use
  Company Number: None

PATIENT
  Age: 13 Year
  Sex: Female
  Weight: 43.09 kg

DRUGS (1)
  1. CONCERTA [Suspect]
     Indication: ATTENTION DEFICIT/HYPERACTIVITY DISORDER
     Dosage: 54 MG ONE QD ORAL
     Route: 048
     Dates: start: 20131125, end: 20131201

REACTIONS (6)
  - Anger [None]
  - Frustration [None]
  - Product quality issue [None]
  - Product substitution issue [None]
  - Circumstance or information capable of leading to medication error [None]
  - Therapeutic response unexpected with drug substitution [None]
